FAERS Safety Report 20341416 (Version 8)
Quarter: 2022Q3

REPORT INFORMATION
  Report Type: Report from Study
  Country: US (occurrence: US)
  Receive Date: 20220117
  Receipt Date: 20220919
  Transmission Date: 20221027
  Serious: Yes (Other)
  Sender: FDA-Public Use
  Company Number: US-TAKEDA-2022TUS002253

PATIENT
  Sex: Female
  Weight: 71.655 kg

DRUGS (43)
  1. HUMAN IMMUNOGLOBULIN G [Suspect]
     Active Substance: HUMAN IMMUNOGLOBULIN G
     Indication: Immunodeficiency common variable
     Dosage: 12 GRAM, 1/WEEK
     Route: 058
     Dates: start: 20211221
  2. HUMAN IMMUNOGLOBULIN G [Suspect]
     Active Substance: HUMAN IMMUNOGLOBULIN G
     Dosage: 14 GRAM, 1/WEEK
     Route: 058
     Dates: start: 20211221
  3. HUMAN IMMUNOGLOBULIN G [Suspect]
     Active Substance: HUMAN IMMUNOGLOBULIN G
     Dosage: 16 GRAM, 1/WEEK
     Route: 058
     Dates: start: 20211221
  4. LEVAQUIN [Suspect]
     Active Substance: LEVOFLOXACIN
     Indication: Product used for unknown indication
     Route: 065
  5. DIPHENHYDRAMINE [Concomitant]
     Active Substance: DIPHENHYDRAMINE
  6. NUCALA [Concomitant]
     Active Substance: MEPOLIZUMAB
  7. VITAMIN D3 [Concomitant]
     Active Substance: CHOLECALCIFEROL
  8. DIETARY SUPPLEMENT\PROBIOTICS [Concomitant]
     Active Substance: DIETARY SUPPLEMENT\PROBIOTICS
  9. BUPROPION [Concomitant]
     Active Substance: BUPROPION
  10. METOPROLOL [Concomitant]
     Active Substance: METOPROLOL
  11. EPINEPHRINE [Concomitant]
     Active Substance: EPINEPHRINE
  12. POTASSIUM CHLORIDE [Concomitant]
     Active Substance: POTASSIUM CHLORIDE
  13. BREO ELLIPTA [Concomitant]
     Active Substance: FLUTICASONE FUROATE\VILANTEROL TRIFENATATE
  14. BIOTIN [Concomitant]
     Active Substance: BIOTIN
  15. ALPHA LIPOIC [Concomitant]
  16. HYDROCORTISONE [Concomitant]
     Active Substance: HYDROCORTISONE
  17. ZYRTEC [Concomitant]
     Active Substance: CETIRIZINE HYDROCHLORIDE
  18. VALTREX [Concomitant]
     Active Substance: VALACYCLOVIR HYDROCHLORIDE
  19. SPIRIVA RESPIMAT [Concomitant]
     Active Substance: TIOTROPIUM BROMIDE
  20. ACETAMINOPHEN [Concomitant]
     Active Substance: ACETAMINOPHEN
  21. SINGULAIR [Concomitant]
     Active Substance: MONTELUKAST SODIUM
  22. ZOFRAN [Concomitant]
     Active Substance: ONDANSETRON HYDROCHLORIDE
  23. ALBUTEROL\IPRATROPIUM [Concomitant]
     Active Substance: ALBUTEROL\IPRATROPIUM
  24. MAGNESIUM OXIDE [Concomitant]
     Active Substance: MAGNESIUM OXIDE
  25. CLONAZEPAM [Concomitant]
     Active Substance: CLONAZEPAM
  26. ACETYL L CARNITINE HCL [Concomitant]
  27. HYDROCHLOROTHIAZIDE [Concomitant]
     Active Substance: HYDROCHLOROTHIAZIDE
  28. CELEBREX [Concomitant]
     Active Substance: CELECOXIB
  29. ALBUTEROL SULFATE [Concomitant]
     Active Substance: ALBUTEROL SULFATE
  30. VITAMIN C [Concomitant]
     Active Substance: ASCORBIC ACID
  31. SERTRALINE [Concomitant]
     Active Substance: SERTRALINE HYDROCHLORIDE
  32. LIDOCAINE [Concomitant]
     Active Substance: LIDOCAINE
  33. PANTOPRAZOLE SODIUM [Concomitant]
     Active Substance: PANTOPRAZOLE SODIUM
  34. CLIMARA PRO [Concomitant]
     Active Substance: ESTRADIOL\LEVONORGESTREL
  35. PEPCID [Concomitant]
     Active Substance: FAMOTIDINE
  36. MAXALT [Concomitant]
     Active Substance: RIZATRIPTAN BENZOATE
  37. METOPROLOL SUCCINATE [Concomitant]
     Active Substance: METOPROLOL SUCCINATE
     Route: 065
  38. SERTRALINE HYDROCHLORIDE [Concomitant]
     Active Substance: SERTRALINE HYDROCHLORIDE
     Route: 065
  39. DEXAMETHASONE [Concomitant]
     Active Substance: DEXAMETHASONE
  40. PREDNISONE [Concomitant]
     Active Substance: PREDNISONE
  41. AJOVY [Concomitant]
     Active Substance: FREMANEZUMAB-VFRM
  42. MUCINEX [Concomitant]
     Active Substance: GUAIFENESIN
  43. DELSYM [Concomitant]
     Active Substance: DEXTROMETHORPHAN

REACTIONS (8)
  - Pneumonia bacterial [Not Recovered/Not Resolved]
  - Pneumonia [Unknown]
  - Surgery [Unknown]
  - Respiratory tract infection [Unknown]
  - Fungal infection [Not Recovered/Not Resolved]
  - Infusion site extravasation [Unknown]
  - Laboratory test abnormal [Unknown]
  - Drug hypersensitivity [Unknown]
